FAERS Safety Report 13833086 (Version 1)
Quarter: 2017Q3

REPORT INFORMATION
  Report Type: Spontaneous
  Country: US (occurrence: US)
  Receive Date: 20170803
  Receipt Date: 20170803
  Transmission Date: 20171127
  Serious: Yes (Hospitalization, Disabling, Other)
  Sender: FDA-Public Use
  Company Number: None

PATIENT
  Age: 68 Year
  Sex: Female
  Weight: 56.75 kg

DRUGS (9)
  1. THYLENOL [Concomitant]
  2. CALCIUM [Concomitant]
     Active Substance: CALCIUM
  3. ASPIRIN. [Concomitant]
     Active Substance: ASPIRIN
  4. METFORMIN [Concomitant]
     Active Substance: METFORMIN HYDROCHLORIDE
  5. LIPITOR [Concomitant]
     Active Substance: ATORVASTATIN CALCIUM
  6. VITAMIN D3 [Concomitant]
     Active Substance: CHOLECALCIFEROL
  7. MULTIVITAMIN [Concomitant]
     Active Substance: VITAMINS
  8. VITAMIN B12 [Concomitant]
     Active Substance: CYANOCOBALAMIN
  9. PROLIA [Suspect]
     Active Substance: DENOSUMAB
     Indication: OSTEOPOROSIS
     Dosage: 1MG (J0897)
     Dates: end: 20151210

REACTIONS (13)
  - Gait inability [None]
  - Throat tightness [None]
  - Lip swelling [None]
  - Pyrexia [None]
  - Chills [None]
  - Back pain [None]
  - Supraventricular tachycardia [None]
  - Dyspnoea [None]
  - Arthralgia [None]
  - Intervertebral disc compression [None]
  - Muscle spasms [None]
  - Vertebral artery stenosis [None]
  - Pain in jaw [None]

NARRATIVE: CASE EVENT DATE: 20151225
